FAERS Safety Report 16807129 (Version 1)
Quarter: 2019Q3

REPORT INFORMATION
  Report Type: Spontaneous
  Country: FR (occurrence: FR)
  Receive Date: 20190913
  Receipt Date: 20190913
  Transmission Date: 20191005
  Serious: Yes (Other)
  Sender: FDA-Public Use
  Company Number: FR-MYLANLABS-2019M1085263

PATIENT
  Age: 10 Year
  Sex: Male
  Weight: 34.1 kg

DRUGS (1)
  1. ALPRAZOLAM. [Suspect]
     Active Substance: ALPRAZOLAM
     Indication: CHEMICAL SUBMISSION
     Dosage: UNK
     Route: 048

REACTIONS (1)
  - Chemical submission [Recovered/Resolved]

NARRATIVE: CASE EVENT DATE: 20160316
